FAERS Safety Report 9786265 (Version 1)
Quarter: 2013Q4

REPORT INFORMATION
  Report Type: Spontaneous
  Country: US (occurrence: US)
  Receive Date: 20131227
  Receipt Date: 20131227
  Transmission Date: 20140711
  Serious: Yes (Hospitalization)
  Sender: FDA-Public Use
  Company Number: US-BAYER-2013-156782

PATIENT
  Age: 70 Year
  Sex: Male

DRUGS (7)
  1. ACETYLSALICYLIC ACID({=100 MG) [Suspect]
     Indication: ANALGESIC THERAPY
     Dosage: 81 MG, UNK
  2. IBUPROFEN [Suspect]
     Indication: ANALGESIC THERAPY
  3. HYDROCODONE [Concomitant]
     Indication: ANALGESIC THERAPY
  4. OXYCODONE [Concomitant]
     Indication: ANALGESIC THERAPY
  5. TRAMADOL [Concomitant]
     Indication: ANALGESIC THERAPY
  6. CLONAZEPAM [Concomitant]
  7. CYCLOBENZAPRINE [Concomitant]

REACTIONS (1)
  - Extradural haematoma [Recovered/Resolved]
